FAERS Safety Report 8447775-2 (Version None)
Quarter: 2012Q2

REPORT INFORMATION
  Report Type: 
  Country: None (occurrence: None)
  Receive Date: 20120619
  Receipt Date: 20120608
  Transmission Date: 20120825
  Serious: Yes (Hospitalization, Other)
  Sender: FDA-Public Use
  Company Number: US-BAYER-2010-008947

PATIENT
  Age: 47 Year
  Sex: Female
  Weight: 81.633 kg

DRUGS (15)
  1. MINOCYCLINE HCL [Concomitant]
     Dosage: 100 MG, UNK
  2. PROTONIX [Concomitant]
     Dosage: ONE TABLET DAILY
     Route: 048
  3. YAZ [Suspect]
     Indication: ACNE
  4. HYOSCYAMINE [Concomitant]
     Dosage: 0.125 MG, UNK
  5. ALBUTEROL [Concomitant]
     Dosage: 90 ?G, UNK
  6. ALLEGRA [Concomitant]
     Dosage: UNK
  7. FLONASE [Concomitant]
     Dosage: UNK
  8. LANSOPRAZOLE [Concomitant]
     Dosage: 30 MG, UNK
  9. FEXOFENADINE [Concomitant]
     Dosage: 60 MG, UNK
  10. RANITIDINE [Concomitant]
     Dosage: UNK, PRN
     Route: 048
  11. YAZ [Suspect]
     Indication: CONTRACEPTION
     Dosage: UNK
     Dates: start: 20080129, end: 20080202
  12. CLINDAMYCIN [Concomitant]
  13. ZOLPIDEM TARTRATE [Concomitant]
     Dosage: 10 MG, UNK
     Route: 048
     Dates: start: 20080208
  14. DEPO-PROVERA [Concomitant]
     Dosage: UNK
  15. AMBIEN [Concomitant]
     Dosage: UNK, PRN
     Dates: start: 20080208

REACTIONS (10)
  - ANXIETY [None]
  - INJURY [None]
  - CHEST DISCOMFORT [None]
  - PAIN [None]
  - NON-CARDIAC CHEST PAIN [None]
  - EMOTIONAL DISTRESS [None]
  - HEART RATE IRREGULAR [None]
  - BACK PAIN [None]
  - PULMONARY EMBOLISM [None]
  - DIZZINESS [None]
